FAERS Safety Report 18767798 (Version 1)
Quarter: 2021Q1

REPORT INFORMATION
  Report Type: Spontaneous
  Country: US (occurrence: US)
  Receive Date: 20210120
  Receipt Date: 20210120
  Transmission Date: 20210419
  Serious: No
  Sender: FDA-Public Use
  Company Number: None

PATIENT
  Age: 71 Year
  Sex: Male
  Weight: 72 kg

DRUGS (1)
  1. OXYCODONE (OXYCODONE HCL 5MG TAB) [Suspect]
     Active Substance: OXYCODONE HYDROCHLORIDE
     Indication: PAIN
     Route: 048
     Dates: start: 20201111, end: 20201112

REACTIONS (10)
  - Anaphylactic reaction [None]
  - Speech disorder [None]
  - Stridor [None]
  - Throat irritation [None]
  - Angioedema [None]
  - Dysphonia [None]
  - Respiratory depression [None]
  - Swelling face [None]
  - Respiratory distress [None]
  - Apnoea [None]

NARRATIVE: CASE EVENT DATE: 20201112
